FAERS Safety Report 26045760 (Version 1)
Quarter: 2025Q4

REPORT INFORMATION
  Report Type: Report from Study
  Country: EU (occurrence: EU)
  Receive Date: 20251114
  Receipt Date: 20251114
  Transmission Date: 20260118
  Serious: Yes (Hospitalization)
  Sender: ABBVIE
  Company Number: EU-ABBVIE-6545571

PATIENT
  Age: 64 Year
  Sex: Male

DRUGS (1)
  1. SKYRIZI [Suspect]
     Active Substance: RISANKIZUMAB-RZAA
     Indication: Crohn^s disease
     Dosage: DISCONTINUED IN 2025
     Route: 058
     Dates: start: 20250814

REACTIONS (2)
  - Retinal artery occlusion [Unknown]
  - Blindness [Unknown]

NARRATIVE: CASE EVENT DATE: 20251106
